FAERS Safety Report 19855937 (Version 1)
Quarter: 2021Q3

REPORT INFORMATION
  Report Type: Spontaneous
  Country: PT (occurrence: PT)
  Receive Date: 20210920
  Receipt Date: 20210920
  Transmission Date: 20211014
  Serious: Yes (Other)
  Sender: FDA-Public Use
  Company Number: PT-MYLANLABS-2021M1062132

PATIENT
  Age: 66 Year
  Sex: Male

DRUGS (4)
  1. ABACAVIR SULFATE/LAMIVUDINE [Suspect]
     Active Substance: ABACAVIR SULFATE\LAMIVUDINE
     Indication: HIV-2 INFECTION
     Dosage: UNK
     Route: 065
  2. RITONAVIR. [Suspect]
     Active Substance: RITONAVIR
     Indication: HIV-2 INFECTION
     Dosage: UNK
     Route: 065
     Dates: start: 201611
  3. EMTRICITABINE/TENOFOVIR DISOPROXIL [Suspect]
     Active Substance: EMTRICITABINE\TENOFOVIR DISOPROXIL
     Indication: HIV-2 INFECTION
     Dosage: UNK
     Route: 065
  4. PREZISTA [Suspect]
     Active Substance: DARUNAVIR ETHANOLATE
     Indication: HIV-2 INFECTION
     Dosage: UNK
     Route: 048
     Dates: start: 201611

REACTIONS (3)
  - Therapeutic product ineffective [Unknown]
  - Vitamin D deficiency [Unknown]
  - ECG signs of ventricular hypertrophy [Unknown]

NARRATIVE: CASE EVENT DATE: 2016
